FAERS Safety Report 6955666-9 (Version None)
Quarter: 2010Q3

REPORT INFORMATION
  Report Type: 
  Country: None (occurrence: None)
  Receive Date: 20100826
  Receipt Date: 20100826
  Transmission Date: 20110219
  Serious: Yes (Other)
  Sender: FDA-Public Use
  Company Number: None

PATIENT
  Age: 56 Year
  Sex: Female
  Weight: 56.6996 kg

DRUGS (2)
  1. CETIRIZINE HCL [Suspect]
     Indication: SEASONAL ALLERGY
     Dosage: 1 TABLET ONCE A DAY PO
     Route: 048
     Dates: start: 20100101, end: 20100808
  2. ZYRTEC [Concomitant]

REACTIONS (4)
  - INSOMNIA [None]
  - PRURITUS [None]
  - RASH [None]
  - SKIN ULCER [None]
